FAERS Safety Report 6341337-9 (Version None)
Quarter: 2009Q3

REPORT INFORMATION
  Report Type: 
  Country: None (occurrence: None)
  Receive Date: 20090904
  Receipt Date: 20090827
  Transmission Date: 20100115
  Serious: Yes (Hospitalization)
  Sender: FDA-Public Use
  Company Number: PHHY2009JP18564

PATIENT
  Sex: Female

DRUGS (6)
  1. AMN107 AMN+CAP [Suspect]
     Indication: CHRONIC MYELOID LEUKAEMIA
     Dosage: 400 MG, BID
     Route: 048
     Dates: start: 20090324, end: 20090413
  2. AMN107 AMN+CAP [Suspect]
     Dosage: 800 MG, BID
     Route: 048
     Dates: start: 20090414, end: 20090508
  3. AMN107 AMN+CAP [Suspect]
     Dosage: 400 MG, BID
     Route: 048
     Dates: start: 20090509, end: 20090715
  4. AMN107 AMN+CAP [Suspect]
     Dosage: 600 MG, BID
     Route: 048
     Dates: start: 20090716
  5. LASIX [Concomitant]
     Indication: PROPHYLAXIS
     Dosage: 20 MG, UNK
     Route: 048
     Dates: start: 20090324
  6. MUCOSTA [Concomitant]
     Indication: PROPHYLAXIS
     Dosage: 300 MG, UNK
     Route: 048

REACTIONS (4)
  - BLOOD ALKALINE PHOSPHATASE INCREASED [None]
  - CEREBRAL HAEMORRHAGE [None]
  - ELECTROCARDIOGRAM QT PROLONGED [None]
  - GAMMA-GLUTAMYLTRANSFERASE INCREASED [None]
